FAERS Safety Report 19613618 (Version 1)
Quarter: 2021Q3

REPORT INFORMATION
  Report Type: Spontaneous
  Country: GB (occurrence: GB)
  Receive Date: 20210727
  Receipt Date: 20210727
  Transmission Date: 20211014
  Serious: Yes (Life-Threatening, Hospitalization, Disabling)
  Sender: FDA-Public Use
  Company Number: None

PATIENT
  Age: 47 Year
  Sex: Female
  Weight: 46 kg

DRUGS (2)
  1. LANSOPRAZOLE 30MG [Concomitant]
     Active Substance: LANSOPRAZOLE
  2. BOTOX [Suspect]
     Active Substance: ONABOTULINUMTOXINA
     Indication: OROPHARYNGEAL SPASM
     Dates: start: 20200722, end: 20200722

REACTIONS (4)
  - Speech disorder [None]
  - Pharyngeal swelling [None]
  - Dysphagia [None]
  - Tongue paralysis [None]

NARRATIVE: CASE EVENT DATE: 20200722
